FAERS Safety Report 15961818 (Version 3)
Quarter: 2019Q2

REPORT INFORMATION
  Report Type: Spontaneous
  Country: US (occurrence: US)
  Receive Date: 20190214
  Receipt Date: 20190416
  Transmission Date: 20190711
  Serious: Yes (Other)
  Sender: FDA-Public Use
  Company Number: US-ASTRAZENECA-2018SF64641

PATIENT
  Age: 81 Year
  Sex: Male

DRUGS (9)
  1. HCTZ [Concomitant]
     Active Substance: HYDROCHLOROTHIAZIDE
     Route: 048
  2. OMEPRAZOLE. [Suspect]
     Active Substance: OMEPRAZOLE
     Dosage: GENERIC
     Route: 065
     Dates: start: 20141218, end: 20151219
  3. LISINOPRIL. [Concomitant]
     Active Substance: LISINOPRIL
     Route: 048
  4. METHYLIN [Concomitant]
     Active Substance: METHYLPHENIDATE HYDROCHLORIDE
     Route: 048
  5. SIMVASTATIN. [Concomitant]
     Active Substance: SIMVASTATIN
     Route: 048
  6. PAXIL [Concomitant]
     Active Substance: PAROXETINE HYDROCHLORIDE
     Route: 048
  7. PRIMIDONE. [Concomitant]
     Active Substance: PRIMIDONE
     Route: 048
  8. PRILOSEC OTC [Suspect]
     Active Substance: OMEPRAZOLE MAGNESIUM
     Route: 048
     Dates: start: 20070101, end: 20150101
  9. AMBIEN [Concomitant]
     Active Substance: ZOLPIDEM TARTRATE
     Route: 048

REACTIONS (2)
  - Chronic kidney disease [Unknown]
  - Renal injury [Unknown]

NARRATIVE: CASE EVENT DATE: 2015
